FAERS Safety Report 18851488 (Version 2)
Quarter: 2021Q1

REPORT INFORMATION
  Report Type: Spontaneous
  Country: CH (occurrence: CH)
  Receive Date: 20210205
  Receipt Date: 20210217
  Transmission Date: 20210420
  Serious: Yes (Life-Threatening, Hospitalization, Other)
  Sender: FDA-Public Use
  Company Number: CH-MACLEODS PHARMACEUTICALS US LTD-MAC2021030002

PATIENT

DRUGS (2)
  1. TORASEMID [Concomitant]
     Active Substance: TORSEMIDE
     Indication: HYPERTENSION
     Dosage: UNK
     Route: 065
  2. METFORMIN [Suspect]
     Active Substance: METFORMIN HYDROCHLORIDE
     Indication: DIABETES MELLITUS
     Dosage: 850 MILLIGRAM, BID
     Route: 048

REACTIONS (5)
  - Toxicity to various agents [Unknown]
  - Lactic acidosis [Recovered/Resolved]
  - Respiratory distress [Unknown]
  - Hypoglycaemia [Unknown]
  - Metabolic acidosis [Recovered/Resolved]
